FAERS Safety Report 6709423-9 (Version None)
Quarter: 2010Q2

REPORT INFORMATION
  Report Type: 
  Country: None (occurrence: None)
  Receive Date: 20100503
  Receipt Date: 20100503
  Transmission Date: 20101027
  Serious: Yes (Hospitalization)
  Sender: FDA-Public Use
  Company Number: None

PATIENT
  Age: 46 Year
  Sex: Male
  Weight: 62.3 kg

DRUGS (1)
  1. PIOGLITAZONE [Suspect]
     Dosage: 1 DAILY BY MOUTH
     Route: 048
     Dates: start: 20100318

REACTIONS (3)
  - GASTRITIS [None]
  - NAUSEA [None]
  - PANCREATITIS [None]
